FAERS Safety Report 7814921-0 (Version None)
Quarter: 2011Q4

REPORT INFORMATION
  Report Type: 
  Country: None (occurrence: None)
  Receive Date: 20111014
  Receipt Date: 20110929
  Transmission Date: 20120403
  Serious: Yes (Hospitalization, Other)
  Sender: FDA-Public Use
  Company Number: JP-AMGEN-US352878

PATIENT
  Age: 66 Year
  Sex: Male
  Weight: 67.982 kg

DRUGS (8)
  1. ETANERCEPT [Suspect]
     Dosage: 25 MG, BID
     Route: 058
     Dates: start: 20071210, end: 20080731
  2. METHOTREXATE [Suspect]
     Indication: RHEUMATOID ARTHRITIS
     Dosage: 9.3 MG, QWK
     Route: 048
     Dates: start: 20070207, end: 20081106
  3. SULFAMETHOXAZOLE [Concomitant]
     Indication: PROPHYLAXIS
     Dosage: UNK UNK, UNK
     Route: 048
  4. ETANERCEPT [Suspect]
     Indication: RHEUMATOID ARTHRITIS
     Dosage: 25 MG, 2 TIMES/WK
     Route: 058
     Dates: start: 20080804, end: 20081106
  5. BUCILLAMINE [Suspect]
     Indication: RHEUMATOID ARTHRITIS
     Dosage: 200 MG, QD
     Route: 048
  6. ETANERCEPT [Suspect]
     Dosage: 25 MG, 2 TIMES/WK
     Route: 058
     Dates: start: 20081119, end: 20090116
  7. OPALMON [Suspect]
     Indication: LUMBAR SPINAL STENOSIS
     Dosage: UNK UNK, TID
     Route: 048
     Dates: start: 20070807
  8. PREDNISOLONE [Suspect]
     Indication: RHEUMATOID ARTHRITIS
     Dosage: 10 MG, QD
     Route: 048
     Dates: end: 20080207

REACTIONS (2)
  - PNEUMONIA [None]
  - DISSEMINATED TUBERCULOSIS [None]
